FAERS Safety Report 14669722 (Version 2)
Quarter: 2018Q2

REPORT INFORMATION
  Report Type: Spontaneous
  Country: US (occurrence: US)
  Receive Date: 20180322
  Receipt Date: 20180405
  Transmission Date: 20180711
  Serious: No
  Sender: FDA-Public Use
  Company Number: US-GLAXOSMITHKLINE-US2018042511

PATIENT
  Age: 52 Year
  Sex: Female

DRUGS (2)
  1. ALLI [Suspect]
     Active Substance: ORLISTAT
     Indication: WEIGHT LOSS DIET
     Dosage: UNK UNK, TID
     Route: 048
     Dates: start: 20180201
  2. ALLI [Suspect]
     Active Substance: ORLISTAT
     Dosage: UNK

REACTIONS (2)
  - Drug ineffective [Unknown]
  - Medication error [Unknown]
